FAERS Safety Report 5249170-6 (Version None)
Quarter: 2007Q1

REPORT INFORMATION
  Report Type: 
  Country: None (occurrence: None)
  Receive Date: 20070228
  Receipt Date: 20070221
  Transmission Date: 20070707
  Serious: Yes (Death, Other)
  Sender: FDA-Public Use
  Company Number: PHBS2007JP03330

PATIENT
  Age: 45 Year
  Sex: Female

DRUGS (5)
  1. CYCLOSPORINE [Suspect]
     Route: 065
  2. VORICONAZOLE [Concomitant]
     Route: 065
  3. MICAFUNGIN SODIUM [Concomitant]
     Route: 065
  4. PREDNISOLONE [Concomitant]
     Route: 065
  5. TACROLIMUS [Concomitant]
     Dosage: 1 MG/KG/DAY

REACTIONS (2)
  - CANDIDIASIS [None]
  - DISEASE PROGRESSION [None]
